FAERS Safety Report 16265901 (Version 1)
Quarter: 2019Q2

REPORT INFORMATION
  Report Type: Report from Study
  Country: US (occurrence: US)
  Receive Date: 20190502
  Receipt Date: 20190502
  Transmission Date: 20190711
  Serious: Yes (Hospitalization)
  Sender: FDA-Public Use
  Company Number: US-EISAI MEDICAL RESEARCH-EC-2019-055067

PATIENT
  Age: 70 Year
  Sex: Male
  Weight: 73.63 kg

DRUGS (2)
  1. LENVIMA [Suspect]
     Active Substance: LENVATINIB
     Indication: RENAL CANCER
     Route: 048
     Dates: start: 20190405
  2. AFINITOR [Concomitant]
     Active Substance: EVEROLIMUS

REACTIONS (5)
  - Hypertension [Unknown]
  - Insomnia [Unknown]
  - Eye irritation [Unknown]
  - Stress [Unknown]
  - Faeces soft [Unknown]

NARRATIVE: CASE EVENT DATE: 201904
